FAERS Safety Report 4718771-3 (Version None)
Quarter: 2005Q3

REPORT INFORMATION
  Report Type: 
  Country: None (occurrence: None)
  Receive Date: 20050719
  Receipt Date: 20050707
  Transmission Date: 20060218
  Serious: Yes (Other)
  Sender: FDA-Public Use
  Company Number: 2005091293

PATIENT
  Age: 66 Year
  Sex: Female
  Weight: 61.2356 kg

DRUGS (5)
  1. ROGAINE [Suspect]
     Indication: HYPOTRICHOSIS
     Dosage: 1 ML 1-2 TIMES PER DAY TROPICAL
     Route: 061
     Dates: start: 20050422, end: 20050614
  2. ESOMEPRAZOLE (ESOMEPRAZOLE) [Concomitant]
  3. ASCORBIC (ASCORBIC ACID) [Concomitant]
  4. TOCOPHEROL (TOCOPHEROL) [Concomitant]
  5. MULTIVITAMINS (ASCORBIC ACID, ERGOCALCIFEROL, FOLIC ACID, NICOTINAMIDE [Concomitant]

REACTIONS (4)
  - ATRIAL FIBRILLATION [None]
  - DIZZINESS [None]
  - FEELING ABNORMAL [None]
  - HYPERTRICHOSIS [None]
